FAERS Safety Report 8979355 (Version 1)
Quarter: 2012Q4

REPORT INFORMATION
  Report Type: Report from Study
  Country: US (occurrence: US)
  Receive Date: 20121221
  Receipt Date: 20121221
  Transmission Date: 20130627
  Serious: Yes (Other)
  Sender: FDA-Public Use
  Company Number: US-ROCHE-1172076

PATIENT
  Sex: Male
  Weight: 108.96 kg

DRUGS (2)
  1. CAPECITABINE [Suspect]
     Indication: OESOPHAGEAL CARCINOMA
     Route: 048
     Dates: start: 20100326, end: 20100527
  2. CAPECITABINE [Suspect]
     Route: 048

REACTIONS (2)
  - Liver injury [Unknown]
  - Lymphadenopathy [Unknown]
